FAERS Safety Report 11373815 (Version 2)
Quarter: 2015Q3

REPORT INFORMATION
  Report Type: Spontaneous
  Country: US (occurrence: None)
  Receive Date: 20150811
  Receipt Date: 20150831
  Transmission Date: 20151125
  Serious: Yes (Other)
  Sender: FDA-Public Use
  Company Number: 2015SMT00236

PATIENT
  Age: 57 Year
  Sex: Male
  Weight: 115.2 kg

DRUGS (6)
  1. REGRANEX [Suspect]
     Active Substance: BECAPLERMIN
     Indication: SKIN ULCER
     Route: 061
     Dates: start: 201507, end: 201507
  2. LISINOPRIL. [Concomitant]
     Active Substance: LISINOPRIL
  3. AMLODIPINE [Concomitant]
     Active Substance: AMLODIPINE BESYLATE
  4. METFORMIN [Concomitant]
     Active Substance: METFORMIN HYDROCHLORIDE
  5. CELEXA (CITALOPRAM) [Concomitant]
  6. CARBATROL (CARBAMAZEPINE) [Concomitant]
     Active Substance: CARBAMAZEPINE

REACTIONS (4)
  - Drug ineffective [None]
  - Wound complication [None]
  - Drug ineffective for unapproved indication [None]
  - Osteomyelitis [None]
